FAERS Safety Report 4983889-7 (Version None)
Quarter: 2006Q2

REPORT INFORMATION
  Report Type: 
  Country: None (occurrence: None)
  Receive Date: 20060426
  Receipt Date: 20050607
  Transmission Date: 20061013
  Serious: Yes (Hospitalization, Other)
  Sender: FDA-Public Use
  Company Number: US-MERCK-0506USA01057

PATIENT
  Age: 50 Year
  Sex: Female
  Weight: 100 kg

DRUGS (10)
  1. VIOXX [Suspect]
     Indication: ARTHRALGIA
     Route: 048
     Dates: start: 20000524, end: 20010403
  2. VIOXX [Suspect]
     Route: 048
     Dates: start: 20010101, end: 20040101
  3. VIOXX [Suspect]
     Route: 048
     Dates: start: 20010101, end: 20040101
  4. VIOXX [Suspect]
     Indication: ARTHRITIS
     Route: 048
     Dates: start: 20000524, end: 20010403
  5. VIOXX [Suspect]
     Route: 048
     Dates: start: 20010101, end: 20040101
  6. VIOXX [Suspect]
     Route: 048
     Dates: start: 20010101, end: 20040101
  7. ELAVIL [Concomitant]
     Route: 048
  8. PROZAC [Concomitant]
     Route: 065
  9. GEMFIBROZIL [Concomitant]
     Route: 065
  10. HYDROCODONE BITARTRATE [Concomitant]
     Route: 065

REACTIONS (53)
  - ABDOMINAL PAIN [None]
  - ANGINA PECTORIS [None]
  - ARTHRALGIA [None]
  - ARTHROPATHY [None]
  - BACK PAIN [None]
  - BREAST MASS [None]
  - C-REACTIVE PROTEIN INCREASED [None]
  - CELLULITIS [None]
  - CHEST PAIN [None]
  - CORONARY ARTERY DISEASE [None]
  - CORONARY ARTERY STENOSIS [None]
  - DEEP VEIN THROMBOSIS [None]
  - DEPRESSION [None]
  - DIABETES MELLITUS NON-INSULIN-DEPENDENT [None]
  - DIPLOPIA [None]
  - DYSPNOEA [None]
  - DYSPNOEA EXERTIONAL [None]
  - EAR HAEMORRHAGE [None]
  - EPISTAXIS [None]
  - FIBROMYALGIA [None]
  - GASTRIC DISORDER [None]
  - GASTRIC ULCER [None]
  - GASTROINTESTINAL HAEMORRHAGE [None]
  - GINGIVAL BLEEDING [None]
  - HAEMARTHROSIS [None]
  - HAEMATURIA [None]
  - HERNIA [None]
  - HYPERHIDROSIS [None]
  - HYPOTHYROIDISM [None]
  - INCISIONAL HERNIA [None]
  - INJURY [None]
  - INSOMNIA [None]
  - INTERNATIONAL NORMALISED RATIO INCREASED [None]
  - IRON DEFICIENCY ANAEMIA [None]
  - LIPOMA [None]
  - MEMORY IMPAIRMENT [None]
  - MYALGIA [None]
  - NAUSEA [None]
  - NERVOUSNESS [None]
  - NEUROPATHY [None]
  - OVERDOSE [None]
  - PALPITATIONS [None]
  - PLANTAR FASCIITIS [None]
  - PULMONARY EMBOLISM [None]
  - SLEEP DISORDER [None]
  - SMALL INTESTINAL OBSTRUCTION [None]
  - STAPHYLOCOCCAL INFECTION [None]
  - STOMACH DISCOMFORT [None]
  - SUICIDE ATTEMPT [None]
  - THROMBOSIS [None]
  - URINARY TRACT INFECTION [None]
  - VOMITING [None]
  - WOUND DRAINAGE [None]
